FAERS Safety Report 5675767-5 (Version None)
Quarter: 2008Q1

REPORT INFORMATION
  Report Type: 
  Country: None (occurrence: None)
  Receive Date: 20080318
  Receipt Date: 20080307
  Transmission Date: 20080703
  Serious: Yes (Other)
  Sender: FDA-Public Use
  Company Number: 2007337799

PATIENT
  Age: 41 Year
  Sex: Female
  Weight: 54.4316 kg

DRUGS (1)
  1. VISINE II EYE DROPS [Suspect]
     Indication: DRY EYE
     Dosage: OPHTHALMIC
     Route: 047
     Dates: start: 19850101, end: 20071217

REACTIONS (3)
  - CHEMICAL BURNS OF EYE [None]
  - NO THERAPEUTIC RESPONSE [None]
  - PALPITATIONS [None]
